APPROVED DRUG PRODUCT: AMLODIPINE BESYLATE AND ATORVASTATIN CALCIUM
Active Ingredient: AMLODIPINE BESYLATE; ATORVASTATIN CALCIUM
Strength: EQ 5MG BASE;EQ 40MG BASE
Dosage Form/Route: TABLET;ORAL
Application: A217279 | Product #006 | TE Code: AB
Applicant: ALEMBIC PHARMACEUTICALS LTD
Approved: May 22, 2025 | RLD: No | RS: No | Type: RX